FAERS Safety Report 10200251 (Version 1)
Quarter: 2014Q2

REPORT INFORMATION
  Report Type: Spontaneous
  Country: US (occurrence: US)
  Receive Date: 20140527
  Receipt Date: 20140527
  Transmission Date: 20141212
  Serious: No
  Sender: FDA-Public Use
  Company Number: US-SA-2013SA120780

PATIENT
  Age: 81 Year
  Sex: Male

DRUGS (8)
  1. CAMPATH [Suspect]
     Indication: IMMUNOBLASTIC LYMPHOMA
     Route: 058
     Dates: start: 20131111
  2. BENADRYL [Concomitant]
     Indication: PREMEDICATION
     Route: 048
  3. TYLENOL [Concomitant]
     Indication: PREMEDICATION
  4. BACTRIM [Concomitant]
     Indication: ANTIFUNGAL PROPHYLAXIS
     Dosage: DOUBLE STRENGTH
  5. JANUVIA [Concomitant]
     Indication: PROPHYLAXIS
  6. ATENOLOL [Concomitant]
     Indication: HYPERTENSION
     Dosage: DOSE 12.5; UNITS NOT REPORTED
  7. COLCHICINE [Concomitant]
     Indication: GOUT
  8. ZINC [Concomitant]
     Indication: GOUT

REACTIONS (2)
  - Hypersensitivity [Not Recovered/Not Resolved]
  - Urticaria [Not Recovered/Not Resolved]
